FAERS Safety Report 20248028 (Version 1)
Quarter: 2021Q4

REPORT INFORMATION
  Report Type: Spontaneous
  Country: US (occurrence: None)
  Receive Date: 20211228
  Receipt Date: 20211228
  Transmission Date: 20220303
  Serious: No
  Sender: FDA-Public Use
  Company Number: None

PATIENT
  Age: 41 Year
  Sex: Male
  Weight: 75 kg

DRUGS (1)
  1. BAMLANIVIMAB\ETESEVIMAB [Suspect]
     Active Substance: BAMLANIVIMAB\ETESEVIMAB
     Indication: COVID-19
     Dosage: FREQUENCY : ONCE;?
     Route: 042
     Dates: start: 20211222, end: 20211222

REACTIONS (3)
  - Palpitations [None]
  - Feeling hot [None]
  - Head discomfort [None]

NARRATIVE: CASE EVENT DATE: 20211222
